FAERS Safety Report 8233373-2 (Version None)
Quarter: 2012Q1

REPORT INFORMATION
  Report Type: 
  Country: None (occurrence: None)
  Receive Date: 20120326
  Receipt Date: 20120314
  Transmission Date: 20120608
  Serious: Yes (Hospitalization)
  Sender: FDA-Public Use
  Company Number: US-JNJFOC-20120311518

PATIENT
  Sex: Female
  Weight: 46 kg

DRUGS (16)
  1. HUMIRA [Concomitant]
     Dates: start: 20080906
  2. LOVENOX [Concomitant]
  3. LIDOCAINE [Concomitant]
  4. MIDAZOLAM [Concomitant]
  5. LOTRISONE [Concomitant]
  6. IRON [Concomitant]
  7. HYDROMORPHONE HCL [Concomitant]
  8. FERROUS SULFATE TAB [Concomitant]
  9. NYSTATIN [Concomitant]
  10. DIFLUCAN [Concomitant]
  11. CLOTRIMAZOLE [Concomitant]
     Route: 061
  12. ACETAMINOPHEN [Concomitant]
  13. MORPHINE [Concomitant]
  14. FOLIC ACID [Concomitant]
  15. REMICADE [Suspect]
     Indication: CROHN'S DISEASE
     Route: 042
     Dates: start: 20041224, end: 20060606
  16. PEPCID [Concomitant]

REACTIONS (2)
  - POSTOPERATIVE WOUND INFECTION [None]
  - CROHN'S DISEASE [None]
